FAERS Safety Report 7743908-1 (Version None)
Quarter: 2011Q3

REPORT INFORMATION
  Report Type: 
  Country: None (occurrence: None)
  Receive Date: 20110912
  Receipt Date: 20110906
  Transmission Date: 20111222
  Serious: Yes (Hospitalization)
  Sender: FDA-Public Use
  Company Number: DE-GLAXOSMITHKLINE-B0639881A

PATIENT
  Sex: Female
  Weight: 68 kg

DRUGS (3)
  1. EPIRUBICIN [Suspect]
     Indication: BREAST CANCER
     Dosage: 90MGM2 EVERY 3 WEEKS
     Route: 042
     Dates: start: 20100202
  2. LAPATINIB [Suspect]
     Indication: BREAST CANCER
     Dosage: 1000MG PER DAY
     Route: 048
     Dates: start: 20100202
  3. CYCLOPHOSPHAMIDE [Suspect]
     Indication: BREAST CANCER
     Dosage: 600MGM2 EVERY 3 WEEKS
     Route: 042
     Dates: start: 20100202

REACTIONS (2)
  - PYREXIA [None]
  - FEBRILE NEUTROPENIA [None]
